FAERS Safety Report 8260931-1 (Version None)
Quarter: 2012Q2

REPORT INFORMATION
  Report Type: 
  Country: None (occurrence: None)
  Receive Date: 20120402
  Receipt Date: 20120320
  Transmission Date: 20120825
  Serious: Yes (Death)
  Sender: FDA-Public Use
  Company Number: 1236561

PATIENT
  Age: 6 Year
  Sex: Female

DRUGS (11)
  1. METHYLPREDNISOLONE [Suspect]
     Indication: GRAFT VERSUS HOST DISEASE
     Dosage: NOT REPORTED, UNKNOWN, UNKNOWN
  2. ANTI-THYMOCYTE GLOBULIN EQUINE NOS [Suspect]
     Indication: ACUTE LYMPHOCYTIC LEUKAEMIA RECURRENT
     Dosage: NOT REPORTED, UNKNOWN, UNKNOWN
  3. CYTARABINE [Suspect]
     Indication: ACUTE LYMPHOCYTIC LEUKAEMIA RECURRENT
     Dosage: NOT REPORTED, UNKNOWN, UNKNOWN
  4. THERAPEUTIC RADIOPHARMACEUTICALS [Suspect]
     Indication: ACUTE LYMPHOCYTIC LEUKAEMIA RECURRENT
     Dosage: NOT REPORTED, UNKNOWN, OTHER
  5. THIOTEPA [Suspect]
     Indication: ACUTE LYMPHOCYTIC LEUKAEMIA RECURRENT
     Dosage: NOT REPORTED, UNKNOWN, UNKNOWN
  6. IMMUNE GLOBULIN NOS [Suspect]
     Indication: ACUTE LYMPHOCYTIC LEUKAEMIA RECURRENT
     Dosage: NOT REPORTED, UNKNOWN, UNKNOWN
  7. GANCICLOVIR [Suspect]
     Indication: CYTOMEGALOVIRUS VIRAEMIA
     Dosage: 12 MG/KG, UNKNOWN, UNKNOWN
  8. CORTICOSTEROIDS [Suspect]
     Indication: ACUTE LYMPHOCYTIC LEUKAEMIA RECURRENT
     Dosage: NOT REPORTED, UNKNOWN, UNKNOWN
  9. CIDOFOVIR [Suspect]
     Indication: CYTOMEGALOVIRUS VIRAEMIA
     Dosage: TWO DOSES, UNKNOWN, UNKNOWN
  10. FOSCARNET SODIUM [Suspect]
     Indication: CYTOMEGALOVIRUS VIRAEMIA
     Dosage: 90 MG/KG, UNKNOWN, UNKNOWN
  11. MONOCLONAL ANTIBODIES [Suspect]
     Indication: GRAFT VERSUS HOST DISEASE
     Dosage: NOT REPORTED, UNKNOWN, UNKNOWN

REACTIONS (12)
  - SEPSIS [None]
  - PNEUMONIA [None]
  - PYREXIA [None]
  - CNS VENTRICULITIS [None]
  - ABSCESS FUNGAL [None]
  - HYDROCEPHALUS [None]
  - CONVULSION [None]
  - GRAFT VERSUS HOST DISEASE IN SKIN [None]
  - ENCEPHALITIS CYTOMEGALOVIRUS [None]
  - STEM CELL TRANSPLANT [None]
  - RENAL ABSCESS [None]
  - MENTAL STATUS CHANGES [None]
